FAERS Safety Report 9322142 (Version 2)
Quarter: 2013Q2

REPORT INFORMATION
  Report Type: Spontaneous
  Country: US (occurrence: None)
  Receive Date: 20130528
  Receipt Date: 20130607
  Transmission Date: 20140414
  Serious: Yes (Hospitalization, Other)
  Sender: FDA-Public Use
  Company Number: ACO_36336_2013

PATIENT
  Age: 57 Year
  Sex: Female

DRUGS (2)
  1. AMPYRA (DALFAMPRIDINE) TABLET, 10MG [Suspect]
     Indication: GAIT DISTURBANCE
     Dates: start: 20120613, end: 201305
  2. AMPYRA (DALFAMPRIDINE) TABLET, 10MG [Suspect]
     Indication: MULTIPLE SCLEROSIS
     Dates: start: 20120613, end: 201305

REACTIONS (6)
  - Hip fracture [None]
  - Arthropathy [None]
  - Fall [None]
  - Nausea [None]
  - Gait disturbance [None]
  - Procedural pain [None]
